FAERS Safety Report 16263437 (Version 2)
Quarter: 2019Q2

REPORT INFORMATION
  Report Type: Spontaneous
  Country: AU (occurrence: AU)
  Receive Date: 20190502
  Receipt Date: 20190612
  Transmission Date: 20190711
  Serious: Yes (Other)
  Sender: FDA-Public Use
  Company Number: AU-OCTA-LIT02719AU

PATIENT
  Age: 58 Year
  Sex: Male

DRUGS (1)
  1. FLEBOGAMMA [Suspect]
     Active Substance: HUMAN IMMUNOGLOBULIN G
     Indication: PARVOVIRUS B19 INFECTION
     Dosage: 2 G/KG IN TWO DOSES, 3 DAYS APART
     Route: 042

REACTIONS (1)
  - Splenic rupture [Unknown]
